FAERS Safety Report 8249059-4 (Version None)
Quarter: 2012Q1

REPORT INFORMATION
  Report Type: 
  Country: None (occurrence: None)
  Receive Date: 20120327
  Receipt Date: 20120316
  Transmission Date: 20120608
  Serious: Yes (Other)
  Sender: FDA-Public Use
  Company Number: IMP_05780_2012

PATIENT
  Age: 74 Year
  Sex: Male

DRUGS (4)
  1. FENOFIBRATE [Suspect]
     Indication: DYSLIPIDAEMIA
     Dosage: (DF)
  2. BISOPROLOL FUMARATE [Concomitant]
  3. DOXAZOSIN MESYLATE [Concomitant]
  4. ASPIRIN [Concomitant]

REACTIONS (19)
  - METABOLIC ACIDOSIS [None]
  - LOW DENSITY LIPOPROTEIN INCREASED [None]
  - CHROMATURIA [None]
  - MUSCULAR WEAKNESS [None]
  - ALANINE AMINOTRANSFERASE INCREASED [None]
  - HYPERKALAEMIA [None]
  - PULMONARY ARTERY THROMBOSIS [None]
  - FIBRIN D DIMER INCREASED [None]
  - PROTEIN C DECREASED [None]
  - DEEP VEIN THROMBOSIS [None]
  - BLOOD LACTATE DEHYDROGENASE INCREASED [None]
  - MYALGIA [None]
  - RENAL FAILURE ACUTE [None]
  - BLOOD CREATINE PHOSPHOKINASE INCREASED [None]
  - SINUS TACHYCARDIA [None]
  - CONSTIPATION [None]
  - ABDOMINAL PAIN UPPER [None]
  - BLOOD FIBRINOGEN INCREASED [None]
  - ASPARTATE AMINOTRANSFERASE INCREASED [None]
